FAERS Safety Report 15326546 (Version 3)
Quarter: 2018Q4

REPORT INFORMATION
  Report Type: Spontaneous
  Country: US (occurrence: US)
  Receive Date: 20180828
  Receipt Date: 20181009
  Transmission Date: 20190204
  Serious: Yes (Other)
  Sender: FDA-Public Use
  Company Number: US-GILEAD-2018-0359316

PATIENT
  Age: 37 Year
  Sex: Male
  Weight: 129.25 kg

DRUGS (3)
  1. THIAMINE. [Concomitant]
     Active Substance: THIAMINE
     Indication: ALCOHOL ABUSE
  2. AMLODIPINE [Concomitant]
     Active Substance: AMLODIPINE BESYLATE
     Indication: HYPERTENSION
  3. HARVONI [Suspect]
     Active Substance: LEDIPASVIR\SOFOSBUVIR
     Indication: CHRONIC HEPATITIS C
     Dosage: UNK UNK, QD
     Route: 048
     Dates: start: 20170809, end: 20171031

REACTIONS (3)
  - Genotype drug resistance test positive [Not Recovered/Not Resolved]
  - Hepatitis C [Unknown]
  - Treatment failure [Unknown]

NARRATIVE: CASE EVENT DATE: 20180131
